FAERS Safety Report 4337854-3 (Version None)
Quarter: 2004Q2

REPORT INFORMATION
  Report Type: 
  Country: None (occurrence: None)
  Receive Date: 20040408
  Receipt Date: 20040331
  Transmission Date: 20050107
  Serious: Yes (Other)
  Sender: FDA-Public Use
  Company Number: GB-JNJFOC-20040400309

PATIENT
  Age: 14 Year
  Sex: Male

DRUGS (3)
  1. CONCERTA [Suspect]
     Indication: ATTENTION DEFICIT/HYPERACTIVITY DISORDER
     Dosage: 1 DOSE (S), 1 IN 1 DAY, ORAL
     Route: 048
     Dates: start: 20030313, end: 20040316
  2. OXYBUTYNIN [Concomitant]
  3. METHYLPHENIDATE HCL [Concomitant]

REACTIONS (3)
  - AGGRESSION [None]
  - MARKEDLY REDUCED DIETARY INTAKE [None]
  - URTICARIA [None]
